FAERS Safety Report 10854938 (Version 2)
Quarter: 2015Q1

REPORT INFORMATION
  Report Type: Report from Study
  Country: CA (occurrence: None)
  Receive Date: 20150218
  Receipt Date: 20150225
  Transmission Date: 20150721
  Serious: Yes (Other)
  Sender: FDA-Public Use
  Company Number: 2015-10677

PATIENT
  Age: 75 Year
  Sex: Female

DRUGS (1)
  1. EYLEA [Suspect]
     Active Substance: AFLIBERCEPT
     Indication: MACULAR DEGENERATION
     Dosage: LEFT EYE, INTRAOCULAR
     Route: 031
     Dates: start: 20140604

REACTIONS (6)
  - Surgery [None]
  - Eye pain [None]
  - Visual brightness [None]
  - Swelling face [None]
  - Pruritus [None]
  - Retinal haemorrhage [None]

NARRATIVE: CASE EVENT DATE: 201406
